FAERS Safety Report 6381499-0 (Version None)
Quarter: 2009Q3

REPORT INFORMATION
  Report Type: 
  Country: None (occurrence: None)
  Receive Date: 20090924
  Receipt Date: 20090915
  Transmission Date: 20100115
  Serious: Yes (Disabling, Other)
  Sender: FDA-Public Use
  Company Number: ADE# 09-119

PATIENT
  Sex: Female

DRUGS (1)
  1. TRAMADOL HCL [Suspect]
     Indication: HEADACHE
     Dosage: FOUR TABLETS AT ONCE
     Dates: start: 20090824

REACTIONS (6)
  - CONVULSION [None]
  - FEELING HOT [None]
  - HYPERHIDROSIS [None]
  - NERVE INJURY [None]
  - SPEECH DISORDER [None]
  - WRONG DRUG ADMINISTERED [None]
